FAERS Safety Report 11462584 (Version 1)
Quarter: 2015Q3

REPORT INFORMATION
  Report Type: Spontaneous
  Country: US (occurrence: US)
  Receive Date: 20150831
  Receipt Date: 20150831
  Transmission Date: 20151125
  Serious: Yes (Other)
  Sender: FDA-Public Use
  Company Number: US-ELI_LILLY_AND_COMPANY-US201012003084

PATIENT
  Age: 56 Year
  Sex: Female

DRUGS (3)
  1. CYMBALTA [Suspect]
     Active Substance: DULOXETINE HYDROCHLORIDE
     Indication: DEPRESSION
     Dosage: 20 MG, DAILY (1/D)
     Route: 048
     Dates: start: 201009, end: 201010
  2. PROPRANOLOL [Concomitant]
     Active Substance: PROPRANOLOL\PROPRANOLOL HYDROCHLORIDE
     Indication: ESSENTIAL TREMOR
     Dosage: 80 MG, UNKNOWN
  3. XANAX [Concomitant]
     Active Substance: ALPRAZOLAM

REACTIONS (18)
  - Facial pain [Recovered/Resolved]
  - Hyperhidrosis [Recovering/Resolving]
  - Irritability [Recovered/Resolved]
  - Muscle tightness [Not Recovered/Not Resolved]
  - Influenza like illness [Recovering/Resolving]
  - Salivary hypersecretion [Recovered/Resolved]
  - Nausea [Recovered/Resolved]
  - Agitation [Recovered/Resolved]
  - Disturbance in attention [Recovering/Resolving]
  - Vertigo [Recovered/Resolved]
  - Suicidal ideation [Recovered/Resolved]
  - Abnormal dreams [Recovered/Resolved]
  - Depersonalisation [Recovering/Resolving]
  - Dizziness [Recovering/Resolving]
  - Paraesthesia [Recovered/Resolved]
  - Headache [Not Recovered/Not Resolved]
  - Hypoaesthesia [Recovered/Resolved]
  - Crying [Recovering/Resolving]

NARRATIVE: CASE EVENT DATE: 201009
